FAERS Safety Report 5283490-4 (Version None)
Quarter: 2007Q1

REPORT INFORMATION
  Report Type: 
  Country: None (occurrence: None)
  Receive Date: 20070329
  Receipt Date: 20070329
  Transmission Date: 20070707
  Serious: Yes (Hospitalization)
  Sender: FDA-Public Use
  Company Number: None

PATIENT
  Age: 69 Year
  Sex: Female
  Weight: 72 kg

DRUGS (7)
  1. AVELOX [Suspect]
     Indication: LUNG INFILTRATION
     Dosage: 400MG Q24H IV 041
     Route: 042
     Dates: start: 20061015, end: 20061020
  2. VANCOMYCIN [Concomitant]
  3. FLUCONAZOLE [Concomitant]
  4. SOLU-MEDROL [Concomitant]
  5. HALDOL [Concomitant]
  6. KLONOPIN [Concomitant]
  7. LASIX [Concomitant]

REACTIONS (4)
  - EOSINOPHILS URINE PRESENT [None]
  - FUNGUS URINE TEST POSITIVE [None]
  - NEPHRITIS INTERSTITIAL [None]
  - RENAL FAILURE ACUTE [None]
